FAERS Safety Report 25095427 (Version 1)
Quarter: 2025Q1

REPORT INFORMATION
  Report Type: Spontaneous
  Country: US (occurrence: US)
  Receive Date: 20250319
  Receipt Date: 20250319
  Transmission Date: 20250409
  Serious: Yes (Other)
  Sender: PFIZER
  Company Number: US-PFIZER INC-202500056741

PATIENT
  Age: 34 Year
  Sex: Female

DRUGS (4)
  1. ZAVZPRET [Suspect]
     Active Substance: ZAVEGEPANT HYDROCHLORIDE
     Indication: Migraine
     Dosage: 10 MG, 1X/DAY (ONCE DAY)
     Dates: end: 20250227
  2. OXITRIPTAN [Concomitant]
     Active Substance: OXITRIPTAN
  3. BOTOX [Concomitant]
     Active Substance: ONABOTULINUMTOXINA
  4. LAMICTAL [Concomitant]
     Active Substance: LAMOTRIGINE

REACTIONS (2)
  - Bipolar disorder [Recovered/Resolved]
  - Psychotic disorder [Recovered/Resolved]
